FAERS Safety Report 12728462 (Version 1)
Quarter: 2016Q3

REPORT INFORMATION
  Report Type: Spontaneous
  Country: US (occurrence: US)
  Receive Date: 20160907
  Receipt Date: 20160907
  Transmission Date: 20161109
  Serious: No
  Sender: FDA-Public Use
  Company Number: None

PATIENT
  Sex: Female

DRUGS (11)
  1. AMLODIPINOL [Concomitant]
  2. VITAMIN C [Concomitant]
     Active Substance: ASCORBIC ACID
  3. LIPITOR [Concomitant]
     Active Substance: ATORVASTATIN CALCIUM
  4. ONE A DAY [Concomitant]
  5. METOPROLOL. [Concomitant]
     Active Substance: METOPROLOL
  6. MAGNESIUM [Concomitant]
     Active Substance: MAGNESIUM
  7. PROLIA [Suspect]
     Active Substance: DENOSUMAB
     Indication: BONE DISORDER
     Dates: end: 201502
  8. VALSARTAN-(DIOVAN) [Concomitant]
  9. VITAMIN B12 [Concomitant]
     Active Substance: CYANOCOBALAMIN
  10. CALCIUM+VIT D [Concomitant]
  11. B-6 [Concomitant]

REACTIONS (4)
  - Pain in extremity [None]
  - Post procedural complication [None]
  - Periarthritis [None]
  - Burning sensation [None]
